FAERS Safety Report 10458527 (Version 1)
Quarter: 2014Q3

REPORT INFORMATION
  Report Type: Spontaneous
  Country: US (occurrence: None)
  Receive Date: 20140916
  Receipt Date: 20140916
  Transmission Date: 20150326
  Serious: No
  Sender: FDA-Public Use
  Company Number: None

PATIENT
  Age: 57 Year
  Sex: Male
  Weight: 98.4 kg

DRUGS (1)
  1. TRAMADOL [Suspect]
     Active Substance: TRAMADOL
     Indication: DELIRIUM
     Route: 048
     Dates: start: 20131209, end: 20140404

REACTIONS (2)
  - Mental status changes [None]
  - Anxiety [None]

NARRATIVE: CASE EVENT DATE: 20140525
